FAERS Safety Report 9886631 (Version 1)
Quarter: 2014Q1

REPORT INFORMATION
  Report Type: Spontaneous
  Country: IT (occurrence: IT)
  Receive Date: 20140210
  Receipt Date: 20140210
  Transmission Date: 20141002
  Serious: Yes (Other)
  Sender: FDA-Public Use
  Company Number: PHHY2014IT013507

PATIENT
  Age: 57 Year
  Sex: Female

DRUGS (3)
  1. BISOPROLOL [Suspect]
     Indication: HYPERTENSION
     Dosage: 10 MG, UNK
     Route: 048
     Dates: start: 20131113, end: 20131211
  2. ANASTROZOLO TEVA [Suspect]
     Indication: BREAST CANCER
     Route: 048
     Dates: start: 20131113, end: 20131213
  3. TAMOXIFEN [Concomitant]
     Indication: BREAST CANCER

REACTIONS (6)
  - Dyspepsia [Recovering/Resolving]
  - Dysphagia [Recovering/Resolving]
  - Dyspnoea [Recovering/Resolving]
  - Laryngeal oedema [Recovering/Resolving]
  - Ocular hyperaemia [Recovering/Resolving]
  - Pruritus [Recovering/Resolving]
